FAERS Safety Report 23677618 (Version 2)
Quarter: 2024Q1

REPORT INFORMATION
  Report Type: Spontaneous
  Country: CN (occurrence: CN)
  Receive Date: 20240327
  Receipt Date: 20240329
  Transmission Date: 20240410
  Serious: Yes (Hospitalization, Other)
  Sender: FDA-Public Use
  Company Number: CN-MLMSERVICE-20240320-4890667-2

PATIENT
  Age: 43 Year
  Sex: Male

DRUGS (11)
  1. EPIRUBICIN HYDROCHLORIDE [Suspect]
     Active Substance: EPIRUBICIN HYDROCHLORIDE
     Indication: Diffuse large B-cell lymphoma
     Dosage: 110 MG, REDUCED DOSE, Q3W
     Dates: start: 202110
  2. SIROLIMUS [Suspect]
     Active Substance: SIROLIMUS
     Indication: Diffuse large B-cell lymphoma
     Dosage: 0.3 TABLETS PER DAY
     Dates: start: 202110
  3. IBRUTINIB [Suspect]
     Active Substance: IBRUTINIB
     Indication: Diffuse large B-cell lymphoma
     Dosage: UNK
     Dates: start: 202110
  4. PREDNISONE [Suspect]
     Active Substance: PREDNISONE
     Indication: Diffuse large B-cell lymphoma
     Dosage: 100 MG, REDUCED DOSE, Q3W
     Dates: start: 202110
  5. VINCRISTINE [Suspect]
     Active Substance: VINCRISTINE
     Indication: Diffuse large B-cell lymphoma
     Dosage: 2 MG, REDUCED DOSE, Q3W
     Dates: start: 202110
  6. CELLCEPT [Suspect]
     Active Substance: MYCOPHENOLATE MOFETIL
     Indication: Immunosuppressant drug therapy
     Dosage: 500 MG, 2X/DAY
     Dates: start: 201811, end: 202204
  7. CYCLOPHOSPHAMIDE [Suspect]
     Active Substance: CYCLOPHOSPHAMIDE
     Indication: Diffuse large B-cell lymphoma
     Dosage: 1100 MG, REDUCED DOSE, Q3W
     Dates: start: 202110
  8. RITUXIMAB [Suspect]
     Active Substance: RITUXIMAB
     Indication: Diffuse large B-cell lymphoma
     Dosage: 700 MG, REDUCED DOSE, Q3W
     Dates: start: 202110
  9. TACROLIMUS [Suspect]
     Active Substance: TACROLIMUS
     Indication: Immunosuppressant drug therapy
     Dosage: 2.5 MG, 2X/DAY
     Dates: start: 201811, end: 202110
  10. TACROLIMUS [Suspect]
     Active Substance: TACROLIMUS
     Dosage: REDUCED TO 0.5 MG PER DAY
     Dates: start: 202110
  11. PREDNISONE ACETATE [Suspect]
     Active Substance: PREDNISONE ACETATE
     Indication: Immunosuppressant drug therapy
     Dosage: 10 MG, 1X/DAY
     Route: 048
     Dates: start: 201811, end: 202204

REACTIONS (4)
  - Aspergillus infection [Recovered/Resolved]
  - Immunosuppressant drug level increased [Recovered/Resolved]
  - Granuloma [Recovered/Resolved]
  - Tracheobronchitis [Recovered/Resolved]

NARRATIVE: CASE EVENT DATE: 20220101
